FAERS Safety Report 4836188-8 (Version None)
Quarter: 2005Q4

REPORT INFORMATION
  Report Type: 
  Country: None (occurrence: None)
  Receive Date: 20051123
  Receipt Date: 20051109
  Transmission Date: 20060501
  Serious: Yes (Other)
  Sender: FDA-Public Use
  Company Number: PHRM2005FR02972

PATIENT
  Age: 78 Year
  Sex: Male

DRUGS (10)
  1. EXELON [Suspect]
     Indication: DEMENTIA ALZHEIMER'S TYPE
     Dosage: 1.5 MG, BID
     Route: 048
     Dates: start: 20050408, end: 20050429
  2. SINEMET [Concomitant]
     Indication: PARKINSON'S DISEASE
     Dosage: 10/100 MG, DAILY
     Route: 048
  3. MODOPAR [Concomitant]
     Indication: PARKINSON'S DISEASE
     Dosage: 12.5/50, 5QD
     Route: 048
  4. AMLOR [Concomitant]
     Dosage: 5 MG, QD
     Route: 048
  5. KARDEGIC [Concomitant]
     Dosage: 75 MG, QD
     Route: 048
  6. FORLAX [Concomitant]
     Dosage: 1 DF, QD
     Route: 048
  7. STEROGYL [Concomitant]
     Dosage: 4 DRP, QD
     Route: 048
  8. CORDARONE [Concomitant]
     Dosage: 200 MG, QW5
     Route: 048
  9. OSTRAM [Concomitant]
     Dosage: 0.6 G, BID
     Route: 048
  10. TAREG [Concomitant]
     Dosage: 80 MG, QD
     Route: 048

REACTIONS (2)
  - CONCOMITANT DISEASE AGGRAVATED [None]
  - FREEZING PHENOMENON [None]
